FAERS Safety Report 8353261-0 (Version None)
Quarter: 2012Q2

REPORT INFORMATION
  Report Type: 
  Country: None (occurrence: None)
  Receive Date: 20120509
  Receipt Date: 20120503
  Transmission Date: 20120825
  Serious: Yes (Life-Threatening, Hospitalization, Other)
  Sender: FDA-Public Use
  Company Number: 2010SP003008

PATIENT
  Age: 5 Year
  Sex: Male
  Weight: 32.5 kg

DRUGS (5)
  1. ACETAMINOPHEN [Suspect]
     Indication: PRODUCT USED FOR UNKNOWN INDICATION
     Dosage: 445 MG;ONCE;RTL
     Route: 054
     Dates: start: 20100107
  2. ACETAMINOPHEN [Suspect]
     Indication: PRODUCT USED FOR UNKNOWN INDICATION
     Dosage: 400 MG;ONCE ; 400 MG;ONCE
     Dates: start: 20100107
  3. ACETAMINOPHEN [Suspect]
     Indication: PRODUCT USED FOR UNKNOWN INDICATION
     Dosage: 400 MG;ONCE ; 400 MG;ONCE
     Dates: start: 20100107
  4. PEG-INTRON [Suspect]
     Indication: HEPATITIS C
     Dosage: 64 MCG;SC
     Route: 058
     Dates: start: 20100107, end: 20100107
  5. REBETOL [Suspect]
     Indication: HEPATITIS C
     Dosage: 240 MG;PO
     Route: 048
     Dates: start: 20100107, end: 20100107

REACTIONS (29)
  - SHOCK [None]
  - MULTI-ORGAN DISORDER [None]
  - RASH MACULO-PAPULAR [None]
  - URINE OUTPUT INCREASED [None]
  - RENAL TUBULAR DISORDER [None]
  - NEPHROGENIC DIABETES INSIPIDUS [None]
  - PYREXIA [None]
  - MALAISE [None]
  - INTERNATIONAL NORMALISED RATIO INCREASED [None]
  - RENAL FAILURE [None]
  - DYSKINESIA [None]
  - GENERALISED OEDEMA [None]
  - CONVULSION [None]
  - LACTIC ACIDOSIS [None]
  - HEADACHE [None]
  - DEPRESSED LEVEL OF CONSCIOUSNESS [None]
  - TREMOR [None]
  - MITOCHONDRIAL TOXICITY [None]
  - PULMONARY OEDEMA [None]
  - ACUTE RESPIRATORY DISTRESS SYNDROME [None]
  - RESPIRATORY DISTRESS [None]
  - ELECTROLYTE IMBALANCE [None]
  - COMA [None]
  - PRODUCT PACKAGING ISSUE [None]
  - MENTAL STATUS CHANGES [None]
  - DISSEMINATED INTRAVASCULAR COAGULATION [None]
  - HEPATIC FAILURE [None]
  - VOMITING [None]
  - PETECHIAE [None]
